FAERS Safety Report 17739460 (Version 1)
Quarter: 2020Q2

REPORT INFORMATION
  Report Type: Spontaneous
  Country: US (occurrence: US)
  Receive Date: 20200501
  Receipt Date: 20200501
  Transmission Date: 20200714
  Serious: Yes (Hospitalization)
  Sender: FDA-Public Use
  Company Number: None

PATIENT
  Age: 71 Year
  Sex: Female
  Weight: 68.04 kg

DRUGS (6)
  1. TRULICITY [Suspect]
     Active Substance: DULAGLUTIDE
     Indication: DIABETES MELLITUS
     Dosage: ?          OTHER STRENGTH:.07 MG/0.5 PEN INJ;QUANTITY:0.75 MG/0.5 PEN IN;?
     Dates: start: 20190718, end: 20191225
  2. ATORVASTATIN [Concomitant]
     Active Substance: ATORVASTATIN
  3. MAGNESIUM OXIDE. [Concomitant]
     Active Substance: MAGNESIUM OXIDE
  4. TRADJENTA [Concomitant]
     Active Substance: LINAGLIPTIN
  5. AMILORIDE [Concomitant]
     Active Substance: AMILORIDE
  6. TUMS [Concomitant]
     Active Substance: CALCIUM CARBONATE

REACTIONS (10)
  - Insomnia [None]
  - Diarrhoea [None]
  - Pain in extremity [None]
  - Asthenia [None]
  - Dehydration [None]
  - Muscle spasms [None]
  - Migraine [None]
  - Headache [None]
  - Nausea [None]
  - Vomiting [None]

NARRATIVE: CASE EVENT DATE: 20191229
